FAERS Safety Report 6762176-0 (Version None)
Quarter: 2010Q2

REPORT INFORMATION
  Report Type: 
  Country: None (occurrence: None)
  Receive Date: 20100609
  Receipt Date: 20100416
  Transmission Date: 20101027
  Serious: No
  Sender: FDA-Public Use
  Company Number: US-KINGPHARMUSA00001-K201000466

PATIENT
  Sex: Male
  Weight: 58.957 kg

DRUGS (6)
  1. EMBEDA [Suspect]
     Indication: COMPLEX REGIONAL PAIN SYNDROME
     Dosage: 30 MG, QD
     Route: 048
     Dates: start: 20091101, end: 20091222
  2. BACLOFEN [Concomitant]
     Indication: MUSCLE SPASMS
     Dosage: UNK
  3. ATIVAN [Concomitant]
     Indication: ANXIETY
     Dosage: 2 MG, PRN
  4. NEXIUM [Concomitant]
     Indication: REFLUX OESOPHAGITIS
     Dosage: UNK
  5. CELEXA [Concomitant]
     Indication: AFFECTIVE DISORDER
     Dosage: UNK
  6. DANTROLENE SODIUM [Concomitant]
     Indication: MUSCLE SPASMS
     Dosage: UNK

REACTIONS (4)
  - ANXIETY [None]
  - ASTHENIA [None]
  - MALAISE [None]
  - WITHDRAWAL SYNDROME [None]
